FAERS Safety Report 5405949-9 (Version None)
Quarter: 2007Q3

REPORT INFORMATION
  Report Type: 
  Country: None (occurrence: None)
  Receive Date: 20070802
  Receipt Date: 20070719
  Transmission Date: 20080115
  Serious: Yes (Other)
  Sender: FDA-Public Use
  Company Number: DSU-2007-00397

PATIENT
  Age: 69 Year
  Sex: Female
  Weight: 77.5197 kg

DRUGS (7)
  1. WELCHOL [Suspect]
     Indication: DRUG USE FOR UNKNOWN INDICATION
     Dosage: PER ORAL
     Route: 048
     Dates: start: 20060118
  2. ADVAIR HFA [Suspect]
     Indication: ASTHMA
     Dosage: 1 PUFF (VARIABLE DOSE), INHALATION
     Route: 055
     Dates: start: 20020101
  3. PREDNISONE [Suspect]
     Indication: ASTHMA
     Dosage: INJECTION
     Dates: start: 20060101
  4. PRILOSEC (OMEPRAZOLE) (OMEPRAZOLE) [Concomitant]
  5. COUMADIN [Concomitant]
  6. ACTONEL (RISEDRONATE SODIUM) (RISEDRONATE SODIUM) [Concomitant]
  7. CALCIUM WITH VITAMIN D (ERGOCALCIFEROL, CALCIUM PHOSPHATE, CALCIUM SOD [Concomitant]

REACTIONS (15)
  - ASTHMA [None]
  - CATARACT [None]
  - DRUG INEFFECTIVE [None]
  - EYE HAEMORRHAGE [None]
  - GASTROOESOPHAGEAL REFLUX DISEASE [None]
  - GLAUCOMA [None]
  - HEADACHE [None]
  - IRITIS [None]
  - OPTIC ATROPHY [None]
  - OSTEOPOROSIS [None]
  - SCOTOMA [None]
  - SEASONAL ALLERGY [None]
  - THROMBOSIS [None]
  - URINARY TRACT INFECTION [None]
  - VITREOUS FLOATERS [None]
